FAERS Safety Report 4455925-8 (Version None)
Quarter: 2004Q3

REPORT INFORMATION
  Report Type: 
  Country: None (occurrence: None)
  Receive Date: 20040922
  Receipt Date: 20021112
  Transmission Date: 20050211
  Serious: Yes (Hospitalization, Other)
  Sender: FDA-Public Use
  Company Number: US-BRISTOL-MYERS SQUIBB COMPANY-12108676

PATIENT
  Age: 42 Year
  Sex: Male

DRUGS (9)
  1. ATAZANAVIR [Suspect]
     Indication: HIV INFECTION
     Dosage: INTERRUPTED 08-NOV-02 AND DISCONTINUED THAT SAME DAY
     Route: 048
     Dates: start: 20000418, end: 20021108
  2. DIDANOSINE [Suspect]
     Indication: HIV INFECTION
     Dosage: INTERRUPTED 08-NOV-02 AND DISCONTINUED THAT SAME DAY
     Route: 048
     Dates: start: 20011004, end: 20021108
  3. ZERIT [Suspect]
     Indication: HIV INFECTION
     Dosage: INTERRUPTED 08-NOV-02 AND DISCONTINUED THAT SAME DAY
     Route: 048
     Dates: start: 20000418, end: 20021108
  4. SAQUINAVIR [Suspect]
     Indication: HIV INFECTION
     Dosage: INTERRUPTED 08-NOV-02 AND DISCONTINUED THAT SAME DAY
     Route: 048
     Dates: start: 20000418, end: 20021108
  5. FOSINOPRIL SODIUM [Concomitant]
     Dates: start: 20011004
  6. LASIX [Concomitant]
     Dates: start: 20011127
  7. METOPROLOL SR [Concomitant]
     Dates: start: 20011127, end: 20021110
  8. DIGOXIN [Concomitant]
     Dates: start: 20011127
  9. COUMADIN [Concomitant]
     Dosage: DOSE INCREASED TO 12.5 MG/DAY 26 NOV 02
     Dates: start: 20020829

REACTIONS (5)
  - BACTERAEMIA [None]
  - BODY TEMPERATURE INCREASED [None]
  - CARDIAC FAILURE CONGESTIVE [None]
  - ENDOCARDITIS [None]
  - OCULAR ICTERUS [None]
